FAERS Safety Report 15240805 (Version 1)
Quarter: 2018Q3

REPORT INFORMATION
  Report Type: Spontaneous
  Country: US (occurrence: US)
  Receive Date: 20180710
  Receipt Date: 20180710
  Transmission Date: 20181010
  Serious: No
  Sender: FDA-Public Use
  Company Number: None

PATIENT
  Age: 82 Year
  Sex: Male
  Weight: 65.05 kg

DRUGS (1)
  1. AFLIBERCEPT [Suspect]
     Active Substance: AFLIBERCEPT
     Dosage: ?          OTHER ROUTE:EYE?
     Dates: start: 20171211, end: 20171211

REACTIONS (3)
  - Intraocular pressure increased [None]
  - Recalled product [None]
  - Eye pain [None]

NARRATIVE: CASE EVENT DATE: 20171211
